FAERS Safety Report 25096182 (Version 1)
Quarter: 2025Q1

REPORT INFORMATION
  Report Type: Spontaneous
  Country: ES (occurrence: ES)
  Receive Date: 20250319
  Receipt Date: 20250319
  Transmission Date: 20250409
  Serious: Yes (Hospitalization, Other)
  Sender: ALEXION PHARMACEUTICALS
  Company Number: None

PATIENT
  Age: 66 Year
  Weight: 65 kg

DRUGS (1)
  1. FASENRA [Suspect]
     Active Substance: BENRALIZUMAB
     Indication: Asthma
     Dosage: 30 MG/8 WEEKS, WITH THE FIRST 3 DOSES EVERY 4 WEEKS

REACTIONS (1)
  - Bladder transitional cell carcinoma [Recovering/Resolving]
